FAERS Safety Report 6246362-4 (Version None)
Quarter: 2009Q2

REPORT INFORMATION
  Report Type: 
  Country: None (occurrence: None)
  Receive Date: 20090626
  Receipt Date: 20090608
  Transmission Date: 20091009
  Serious: Yes (Hospitalization)
  Sender: FDA-Public Use
  Company Number: US-PFIZER INC-2009230920

PATIENT
  Sex: Male
  Weight: 77.098 kg

DRUGS (6)
  1. ATORVASTATIN CALCIUM [Suspect]
     Indication: BLOOD CHOLESTEROL INCREASED
     Dosage: 40 MG, 1X/DAY
     Route: 048
  2. CLOPIDOGREL BISULFATE [Concomitant]
     Dosage: 75 MG, 1X/DAY
     Route: 048
  3. CARVEDILOL [Concomitant]
     Indication: HYPERTENSION
     Dosage: 6.25 MG, 2X/DAY
     Route: 048
  4. RAMIPRIL [Concomitant]
     Dosage: 10 MG, 1X/DAY
     Route: 048
  5. ACETYLSALICYLIC ACID [Concomitant]
     Dosage: 325 MG, 1X/DAY
     Route: 048
  6. VITAMIN D [Concomitant]
     Dosage: UNK
     Route: 048

REACTIONS (1)
  - STENT PLACEMENT [None]
